FAERS Safety Report 5220848-3 (Version None)
Quarter: 2007Q1

REPORT INFORMATION
  Report Type: 
  Country: None (occurrence: None)
  Receive Date: 20070126
  Receipt Date: 20070119
  Transmission Date: 20070707
  Serious: Yes (Congenital Anomaly, Other)
  Sender: FDA-Public Use
  Company Number: US-AVENTIS-200710487US

PATIENT
  Sex: Female
  Weight: 2.47 kg

DRUGS (2)
  1. ARAVA [Suspect]
     Dosage: DOSE: UNK
     Route: 064
  2. PREDNISONE [Suspect]
     Dosage: DOSE: UNK
     Route: 064
     Dates: start: 20060816, end: 20061001

REACTIONS (6)
  - ALPHA 1 FOETOPROTEIN INCREASED [None]
  - DRUG EXPOSURE DURING PREGNANCY [None]
  - LABORATORY TEST ABNORMAL [None]
  - NEURAL TUBE DEFECT [None]
  - OESTRIOL ABNORMAL [None]
  - SKIN DISORDER [None]
